FAERS Safety Report 19782202 (Version 1)
Quarter: 2021Q3

REPORT INFORMATION
  Report Type: Spontaneous
  Country: NL (occurrence: NL)
  Receive Date: 20210902
  Receipt Date: 20210902
  Transmission Date: 20211014
  Serious: Yes (Hospitalization, Other)
  Sender: FDA-Public Use
  Company Number: NL-ABBVIE-21K-114-4061487-00

PATIENT
  Sex: Female

DRUGS (1)
  1. DEPAKOTE [Suspect]
     Active Substance: DIVALPROEX SODIUM
     Indication: FEBRILE CONVULSION
     Route: 065

REACTIONS (4)
  - Gastrointestinal inflammation [Unknown]
  - Memory impairment [Unknown]
  - Crohn^s disease [Unknown]
  - Intestinal polyp [Unknown]
